FAERS Safety Report 5313908-X (Version None)
Quarter: 2007Q2

REPORT INFORMATION
  Report Type: 
  Country: None (occurrence: None)
  Receive Date: 20070501
  Receipt Date: 20070425
  Transmission Date: 20071010
  Serious: Yes (Other)
  Sender: FDA-Public Use
  Company Number: 2007AP01890

PATIENT
  Age: 24144 Day
  Sex: Male
  Weight: 71 kg

DRUGS (2)
  1. CASODEX [Suspect]
     Indication: PROSTATE CANCER
     Route: 048
     Dates: start: 20070222, end: 20070326
  2. HARNAL D [Concomitant]
     Route: 048
     Dates: start: 20061209, end: 20070327

REACTIONS (1)
  - HEPATIC FUNCTION ABNORMAL [None]
